FAERS Safety Report 5212057-9 (Version None)
Quarter: 2007Q1

REPORT INFORMATION
  Report Type: 
  Country: None (occurrence: None)
  Receive Date: 20070118
  Receipt Date: 20070108
  Transmission Date: 20070707
  Serious: Yes (Hospitalization)
  Sender: FDA-Public Use
  Company Number: AT-ELI_LILLY_AND_COMPANY-AT200701001484

PATIENT
  Age: 33 Year
  Sex: Female

DRUGS (4)
  1. XIGRIS [Suspect]
     Indication: SEPSIS
     Dosage: 24 UG, EVERY HOUR
     Route: 042
     Dates: start: 20070102, end: 20070104
  2. CUROCEF [Concomitant]
     Indication: SEPSIS
     Dosage: 1.5 G, DAILY (1/D)
     Dates: start: 20070102
  3. FOSFOMYCIN SODIUM [Concomitant]
     Indication: SEPSIS
     Dosage: 8 G, 2/D
     Dates: start: 20070102
  4. HEPARIN SODIUM INJECTION [Concomitant]
     Indication: RENAL FAILURE
     Dosage: 500 U, EVERY HOUR
     Dates: start: 20061231, end: 20070103

REACTIONS (1)
  - THROMBOCYTOPENIA [None]
